FAERS Safety Report 7117253-1 (Version None)
Quarter: 2010Q4

REPORT INFORMATION
  Report Type: 
  Country: None (occurrence: None)
  Receive Date: 20101112
  Receipt Date: 20101028
  Transmission Date: 20110411
  Serious: Yes (Hospitalization)
  Sender: FDA-Public Use
  Company Number: AUR-APL-2010-02707

PATIENT
  Age: 53 Year
  Sex: Male

DRUGS (6)
  1. FLUOXETINE [Suspect]
     Indication: DEPRESSION
     Dosage: 40MG - DAILY - ORAL
     Route: 048
     Dates: end: 20101014
  2. CLOBETASOL TOPICAL [Concomitant]
  3. TRIMOVATE TOPICAL [Concomitant]
  4. ACAMPROSATE [Concomitant]
  5. THIAMINE HCL [Concomitant]
  6. VITAMIN TAB [Concomitant]

REACTIONS (3)
  - BLOOD CHOLESTEROL INCREASED [None]
  - LICHEN PLANUS [None]
  - THYROXINE FREE ABNORMAL [None]
